FAERS Safety Report 7547226-6 (Version None)
Quarter: 2011Q2

REPORT INFORMATION
  Report Type: 
  Country: None (occurrence: None)
  Receive Date: 20110614
  Receipt Date: 20110531
  Transmission Date: 20111010
  Serious: Yes (Hospitalization)
  Sender: FDA-Public Use
  Company Number: US-UCBSA-034525

PATIENT
  Sex: Male
  Weight: 95.5 kg

DRUGS (32)
  1. OMEPRAZOLE [Concomitant]
     Indication: DYSPHAGIA
     Route: 048
     Dates: start: 20100120, end: 20101215
  2. OMEPRAZOLE [Concomitant]
     Route: 048
     Dates: start: 20101216
  3. METHADONE HCL [Concomitant]
     Dosage: QAM
     Route: 048
     Dates: start: 20100312
  4. METHADONE HCL [Concomitant]
     Route: 048
     Dates: start: 20110526, end: 20110526
  5. METHADONE HCL [Concomitant]
     Route: 048
     Dates: start: 20110527, end: 20110527
  6. TRILIPIX [Concomitant]
     Indication: HYPERLIPIDAEMIA
     Route: 048
     Dates: start: 20100316
  7. METHADONE HCL [Concomitant]
     Route: 048
     Dates: start: 20110527, end: 20110527
  8. NEURONTIN [Concomitant]
     Route: 048
     Dates: start: 20110526, end: 20110527
  9. OMEPRAZOLE [Concomitant]
     Indication: OESOPHAGEAL SPASM
     Route: 048
     Dates: start: 20100120, end: 20101215
  10. METHADONE HCL [Concomitant]
     Dosage: QPM
     Route: 048
     Dates: start: 20100310
  11. METHADONE HCL [Concomitant]
     Dosage: QAM
     Route: 048
     Dates: start: 20100312
  12. METHADONE HCL [Concomitant]
     Route: 048
     Dates: start: 20110527, end: 20110527
  13. EXCEDRIN (MIGRAINE) [Concomitant]
     Indication: HEADACHE
     Route: 048
     Dates: start: 20080112
  14. METHADONE HCL [Concomitant]
     Indication: PAIN
     Dosage: HS
     Route: 048
     Dates: start: 20100310
  15. METHADONE HCL [Concomitant]
     Dosage: QAM
     Route: 048
     Dates: start: 20100312
  16. METHADONE HCL [Concomitant]
     Route: 048
     Dates: start: 20110526, end: 20110526
  17. OMEPRAZOLE [Concomitant]
     Route: 048
     Dates: start: 20101216
  18. METHADONE HCL [Concomitant]
     Indication: CROHN'S DISEASE
     Dosage: HS
     Route: 048
     Dates: start: 20100310
  19. METHADONE HCL [Concomitant]
     Dosage: QPM
     Route: 048
     Dates: start: 20100310
  20. CIMZIA [Suspect]
     Dosage: CDP870-032
     Route: 058
     Dates: start: 20041202, end: 20050330
  21. CIMZIA [Suspect]
     Dosage: APPROX 76 DOSES RECEIVED
     Route: 058
     Dates: start: 20050412, end: 20110519
  22. METHADONE HCL [Concomitant]
     Indication: DIARRHOEA
     Dosage: HS
     Route: 048
     Dates: start: 20100310
  23. METHADONE HCL [Concomitant]
     Route: 048
     Dates: start: 20110526, end: 20110526
  24. LISINOPRIL [Concomitant]
     Indication: HYPERTENSION
     Route: 048
     Dates: start: 20080719, end: 20100731
  25. LISINOPRIL [Concomitant]
     Route: 048
     Dates: start: 20100801, end: 20110103
  26. NEURONTIN [Concomitant]
     Indication: ASTHENIA
     Route: 048
     Dates: start: 20071219
  27. VITAMIN B-12 [Concomitant]
     Indication: CROHN'S DISEASE
     Dates: start: 20090623
  28. CIMZIA [Suspect]
     Indication: CROHN'S DISEASE
     Dosage: CDP:870-032; FIRST THREE DOSES
     Route: 058
     Dates: start: 20041007, end: 20041104
  29. METHADONE HCL [Concomitant]
     Dosage: QPM
     Route: 048
     Dates: start: 20100310
  30. LISINOPRIL [Concomitant]
     Route: 048
     Dates: start: 20110104
  31. BIFERA [Concomitant]
     Indication: ANAEMIA
     Dosage: 1 TABLET
     Route: 048
     Dates: start: 20100818
  32. VITAMIN B-12 [Concomitant]
     Indication: VITAMIN B12 DEFICIENCY
     Dates: start: 20090623

REACTIONS (1)
  - PNEUMONIA [None]
